FAERS Safety Report 8904742 (Version 2)
Quarter: 2012Q4

REPORT INFORMATION
  Report Type: 
  Country: US (occurrence: US)
  Receive Date: 20121113
  Receipt Date: 20121114
  Transmission Date: 20130627
  Serious: Yes (Hospitalization, Other)
  Sender: FDA-Public Use
  Company Number: PHHY2012US103628

PATIENT
  Age: 55 Year
  Sex: Male
  Weight: 102 kg

DRUGS (8)
  1. ATORVASTATIN [Suspect]
     Dosage: 40 mg per day
  2. AMLODIPINE W/ATORVASTATIN [Suspect]
     Dosage: 10/40 mg per day
     Dates: start: 2008
  3. VENLAFAXINE [Concomitant]
     Dosage: 75 mg, UNK
  4. ASPIRIN [Concomitant]
  5. AMLODIPINE [Concomitant]
     Dosage: 10 mg, UNK
  6. AMOXICILLIN [Concomitant]
     Dosage: 500 mg, BID
  7. AMLODIPINE/BENAZEPRIL [Concomitant]
     Dosage: 10/20 mg daily
  8. NIACIN [Concomitant]
     Indication: HYPERLIPIDAEMIA
     Dosage: 2000 mg, UNK

REACTIONS (11)
  - Compartment syndrome [Recovered/Resolved]
  - Rhabdomyolysis [Recovered/Resolved]
  - Arthralgia [Recovered/Resolved]
  - Dermatomyositis [Recovered/Resolved]
  - Peroneal nerve palsy [Unknown]
  - Rash [Recovered/Resolved]
  - Rash macular [Recovered/Resolved]
  - Oedema peripheral [Recovered/Resolved]
  - Papule [Recovered/Resolved]
  - Seborrhoeic dermatitis [Recovered/Resolved]
  - Dandruff [Recovered/Resolved]
